FAERS Safety Report 25667812 (Version 1)
Quarter: 2025Q3

REPORT INFORMATION
  Report Type: Spontaneous
  Country: CA (occurrence: CA)
  Receive Date: 20250812
  Receipt Date: 20250812
  Transmission Date: 20251020
  Serious: Yes (Other)
  Sender: CELLTRION
  Company Number: CA-CELLTRION INC.-2025CA026811

PATIENT

DRUGS (1)
  1. INFLIXIMAB [Suspect]
     Active Substance: INFLIXIMAB
     Indication: Colitis ulcerative
     Route: 042
     Dates: start: 20250610

REACTIONS (3)
  - Rectal haemorrhage [Recovering/Resolving]
  - Rectal fissure [Unknown]
  - Off label use [Recovering/Resolving]

NARRATIVE: CASE EVENT DATE: 20250610
